FAERS Safety Report 6895207-8 (Version None)
Quarter: 2010Q3

REPORT INFORMATION
  Report Type: 
  Country: None (occurrence: None)
  Receive Date: 20100802
  Receipt Date: 20100721
  Transmission Date: 20110219
  Serious: Yes (Life-Threatening, Hospitalization)
  Sender: FDA-Public Use
  Company Number: PHHY2010RU41007

PATIENT
  Age: 33 Year
  Sex: Female

DRUGS (3)
  1. VALDOXAN [Suspect]
     Indication: DEPRESSION
     Dosage: 25 MG, QD
     Route: 048
     Dates: start: 20100501, end: 20100601
  2. CLOZAPINE [Suspect]
     Indication: INSOMNIA
     Dosage: UNK
  3. FLUANXOL [Concomitant]
     Route: 030

REACTIONS (2)
  - INTENTIONAL OVERDOSE [None]
  - SUICIDE ATTEMPT [None]
